FAERS Safety Report 9168022 (Version 2)
Quarter: 2013Q1

REPORT INFORMATION
  Report Type: Spontaneous
  Country: US (occurrence: None)
  Receive Date: 20130227
  Receipt Date: 20130312
  Transmission Date: 20140127
  Serious: Yes (Other)
  Sender: FDA-Public Use
  Company Number: 2013034784

PATIENT
  Age: 45 Year
  Sex: Female

DRUGS (6)
  1. AZATHIOPRINE [Suspect]
  2. RITUXIMAB (RITUXIMAB) [Suspect]
  3. CYCLOSPORINE (CICLOSPORIN) [Suspect]
  4. METHOTREXATE (METHOTREXATE) [Suspect]
  5. PREDNISONE (PREDNISONE) [Concomitant]
  6. HP ACTHAR (CORTICOTROPIN) [Concomitant]

REACTIONS (5)
  - Muscular weakness [None]
  - Rash [None]
  - Nail disorder [None]
  - Dermatomyositis [None]
  - Off label use [None]
